FAERS Safety Report 23811675 (Version 1)
Quarter: 2024Q2

REPORT INFORMATION
  Report Type: Spontaneous
  Country: US (occurrence: US)
  Receive Date: 20240503
  Receipt Date: 20240503
  Transmission Date: 20240716
  Serious: No
  Sender: FDA-Public Use
  Company Number: US-PADAGIS-2024PAD00675

PATIENT

DRUGS (5)
  1. ESTRADIOL VAGINAL [Suspect]
     Active Substance: ESTRADIOL
     Indication: Urinary tract infection
     Dosage: 1 G, WEEKLY
     Route: 067
     Dates: start: 20240412
  2. ESTRADIOL VAGINAL [Suspect]
     Active Substance: ESTRADIOL
     Indication: Menopausal symptoms
  3. ESTRADIOL VAGINAL [Suspect]
     Active Substance: ESTRADIOL
     Indication: Atrophic vulvovaginitis
  4. DEMANNOSE [Concomitant]
     Active Substance: DEMANNOSE
     Indication: Urinary tract infection
     Dosage: QD
     Route: 065
  5. CRANBERRY NS [Concomitant]
     Indication: Urinary tract infection
     Dosage: QD
     Route: 065

REACTIONS (5)
  - Feeling abnormal [Unknown]
  - Application site warmth [Unknown]
  - Application site discomfort [Unknown]
  - Prescribed underdose [Unknown]
  - Product use in unapproved indication [Unknown]

NARRATIVE: CASE EVENT DATE: 20240412
